FAERS Safety Report 4718770-1 (Version None)
Quarter: 2005Q3

REPORT INFORMATION
  Report Type: 
  Country: None (occurrence: None)
  Receive Date: 20050719
  Receipt Date: 20050706
  Transmission Date: 20060218
  Serious: Yes (Other)
  Sender: FDA-Public Use
  Company Number: 2005075314

PATIENT
  Age: 46 Year
  Sex: Female

DRUGS (5)
  1. BENADRYL [Suspect]
     Indication: ANXIETY
     Dosage: 2-24 TABS QD RECENTLY 6-12
     Dates: start: 20020101
  2. BENADRYL [Suspect]
     Indication: ANXIETY
     Dosage: 2-24 TABS QD RECENTLY 6-12
     Dates: start: 20020101
  3. RANTIDINE HYDROCHLORIDE (RANITIDINE HYDROCHLORIDE) [Concomitant]
  4. METOCLOPRAMIDE [Concomitant]
  5. CISAPRIDE(CISAPRIDE) [Concomitant]

REACTIONS (5)
  - ANXIETY [None]
  - BRUXISM [None]
  - LEARNING DISORDER [None]
  - MEMORY IMPAIRMENT [None]
  - PERFORMANCE STATUS DECREASED [None]
